FAERS Safety Report 14714716 (Version 1)
Quarter: 2018Q2

REPORT INFORMATION
  Report Type: Report from Study
  Country: US (occurrence: US)
  Receive Date: 20180404
  Receipt Date: 20180404
  Transmission Date: 20180711
  Serious: Yes (Other)
  Sender: FDA-Public Use
  Company Number: PHEH2018US012817

PATIENT

DRUGS (1)
  1. GLEEVEC [Suspect]
     Active Substance: IMATINIB MESYLATE
     Indication: PRODUCT USED FOR UNKNOWN INDICATION
     Dosage: (AT DINNER TIME EACH NIGHT)
     Route: 065
     Dates: end: 201704

REACTIONS (3)
  - Fatigue [Unknown]
  - Recurrent cancer [Unknown]
  - Neoplasm progression [Unknown]
